FAERS Safety Report 4494592-4 (Version None)
Quarter: 2004Q4

REPORT INFORMATION
  Report Type: 
  Country: None (occurrence: None)
  Receive Date: 20041103
  Receipt Date: 20041019
  Transmission Date: 20050328
  Serious: Yes (Life-Threatening, Hospitalization)
  Sender: FDA-Public Use
  Company Number: 2004-0007467

PATIENT
  Age: 61 Year
  Sex: Female

DRUGS (5)
  1. HEPSERA [Suspect]
     Indication: HEPATITIS B
     Dosage: 10 MG, 1 IN 1 D, ORAL
     Route: 048
     Dates: start: 20040312
  2. ZEFFIX (LAMIVUDINE) [Concomitant]
  3. SOPROL(BISOPROLOL FUMARATE) [Concomitant]
  4. LASIX [Concomitant]
  5. PRAVASTATIN [Concomitant]

REACTIONS (4)
  - APHASIA [None]
  - BRADYCARDIA [None]
  - MYOCARDIAL INFARCTION [None]
  - MYOCARDIAL ISCHAEMIA [None]
